FAERS Safety Report 4436259-4 (Version None)
Quarter: 2004Q3

REPORT INFORMATION
  Report Type: 
  Country: None (occurrence: None)
  Receive Date: 20040830
  Receipt Date: 20040615
  Transmission Date: 20050211
  Serious: No
  Sender: FDA-Public Use
  Company Number: US-BRISTOL-MYERS SQUIBB COMPANY-12616249

PATIENT
  Sex: Female

DRUGS (2)
  1. ERBITUX [Suspect]
     Indication: COLON CANCER METASTATIC
     Dates: start: 20040511, end: 20040511
  2. CPT-11 [Concomitant]
     Indication: COLON CANCER METASTATIC

REACTIONS (3)
  - DERMATITIS ACNEIFORM [None]
  - DRY SKIN [None]
  - ERYTHEMA [None]
